FAERS Safety Report 18225027 (Version 6)
Quarter: 2025Q2

REPORT INFORMATION
  Report Type: Report from Study
  Country: CA (occurrence: CA)
  Receive Date: 20200903
  Receipt Date: 20250612
  Transmission Date: 20250716
  Serious: Yes (Hospitalization, Other)
  Sender: AMGEN
  Company Number: CA-AMGEN-CANSL2020013015

PATIENT
  Age: 72 Year
  Sex: Male

DRUGS (5)
  1. PROLIA [Suspect]
     Active Substance: DENOSUMAB
     Indication: Osteoporosis
     Route: 065
     Dates: start: 20150105
  2. CHOLECALCIFEROL [Concomitant]
     Active Substance: CHOLECALCIFEROL
     Route: 065
  3. CHOLESTEROL [Concomitant]
     Active Substance: CHOLESTEROL
  4. CALCIUM [Concomitant]
     Active Substance: CALCIUM
  5. FISH OIL [Concomitant]
     Active Substance: FISH OIL

REACTIONS (15)
  - Feeling hot [Not Recovered/Not Resolved]
  - Oral discomfort [Not Recovered/Not Resolved]
  - Burning sensation [Not Recovered/Not Resolved]
  - Paraesthesia oral [Not Recovered/Not Resolved]
  - Arthritis [Not Recovered/Not Resolved]
  - Osteonecrosis of jaw [Unknown]
  - Dental implantation [Not Recovered/Not Resolved]
  - Parkinson^s disease [Unknown]
  - Sinus perforation [Unknown]
  - Eczema [Unknown]
  - Alopecia [Not Recovered/Not Resolved]
  - Dental implant removal [Unknown]
  - Salivary hypersecretion [Not Recovered/Not Resolved]
  - Post procedural complication [Unknown]
  - Pruritus [Unknown]

NARRATIVE: CASE EVENT DATE: 20171001
